FAERS Safety Report 7008793-4 (Version None)
Quarter: 2010Q3

REPORT INFORMATION
  Report Type: 
  Country: None (occurrence: None)
  Receive Date: 20100921
  Receipt Date: 20100908
  Transmission Date: 20110219
  Serious: Yes (Other)
  Sender: FDA-Public Use
  Company Number: TPH-00286

PATIENT
  Age: 29 Year
  Sex: Female

DRUGS (1)
  1. TRIQUIN TAB [Suspect]
     Indication: ORAL CONTRACEPTION
     Dosage: ORAL
     Route: 048
     Dates: start: 20020101, end: 20100831

REACTIONS (4)
  - DIZZINESS [None]
  - INCORRECT DRUG ADMINISTRATION DURATION [None]
  - MENSTRUATION DELAYED [None]
  - SYNCOPE [None]
